FAERS Safety Report 11640724 (Version 1)
Quarter: 2015Q4

REPORT INFORMATION
  Report Type: Report from Study
  Country: GB (occurrence: GB)
  Receive Date: 20151019
  Receipt Date: 20151019
  Transmission Date: 20160304
  Serious: Yes (Hospitalization, Disabling)
  Sender: FDA-Public Use
  Company Number: GB-MYLANLABS-2015M1034290

PATIENT

DRUGS (15)
  1. VALSARTAN. [Suspect]
     Active Substance: VALSARTAN
     Indication: CARDIAC FAILURE CHRONIC
     Dosage: UNK
     Route: 048
  2. DOXAZOSIN [Concomitant]
     Active Substance: DOXAZOSIN\DOXAZOSIN MESYLATE
     Indication: HYPERTENSION
     Dosage: 4 MG, QD
     Route: 048
  3. DIOVAN [Suspect]
     Active Substance: VALSARTAN
     Indication: CARDIAC FAILURE CHRONIC
     Dosage: NO TREATMENT (SCREENING)
     Route: 065
  4. AMLODIPINE [Concomitant]
     Active Substance: AMLODIPINE BESYLATE
     Indication: HYPERTENSION
  5. HYDRALAZINE [Concomitant]
     Active Substance: HYDRALAZINE HYDROCHLORIDE
     Indication: CARDIAC FAILURE
     Dosage: 50 MG, BID
     Route: 048
  6. LOSARTAN. [Suspect]
     Active Substance: LOSARTAN
     Indication: CARDIAC FAILURE
     Dosage: UNK
  7. PLACEBO [Suspect]
     Active Substance: UNSPECIFIED INGREDIENT
     Indication: CARDIAC FAILURE CHRONIC
     Dosage: NO TREATMENT (SCREENING)
     Route: 065
  8. SPIRONOLACTONE. [Suspect]
     Active Substance: SPIRONOLACTONE
     Indication: DIURETIC THERAPY
     Dosage: 25 MG, QD
     Route: 048
     Dates: end: 20150830
  9. OXYBUTYNIN [Concomitant]
     Active Substance: OXYBUTYNIN
     Indication: POLLAKIURIA
     Dosage: 5 MG, QD
     Route: 048
  10. BISOPROLOL [Concomitant]
     Active Substance: BISOPROLOL
     Indication: CARDIAC FAILURE
     Dosage: 2.5 MG, QD
     Route: 048
  11. FRUSEMIDE [Concomitant]
     Active Substance: FUROSEMIDE
     Indication: CARDIAC FAILURE
     Dosage: 200 MG, QD (200 MG, QD (120 MG OM AND 80 MG N)
     Route: 048
     Dates: end: 20150830
  12. LOSARTAN. [Suspect]
     Active Substance: LOSARTAN
     Indication: HYPERTENSION
     Dosage: 25 MG, QD
     Route: 048
     Dates: end: 20150830
  13. HYDRALAZINE [Concomitant]
     Active Substance: HYDRALAZINE HYDROCHLORIDE
     Indication: HYPERTENSION
  14. ENTRESTO [Suspect]
     Active Substance: SACUBITRIL\VALSARTAN
     Indication: CARDIAC FAILURE CHRONIC
     Dosage: NO TREATMENT (SCREENING)
     Route: 065
  15. AMLODIPINE [Concomitant]
     Active Substance: AMLODIPINE BESYLATE
     Indication: CARDIAC FAILURE
     Dosage: 10 MG, QD
     Route: 048

REACTIONS (3)
  - Chronic kidney disease [Recovering/Resolving]
  - Hyperkalaemia [Recovering/Resolving]
  - Cardiac failure [Recovering/Resolving]

NARRATIVE: CASE EVENT DATE: 20150830
